FAERS Safety Report 9249810 (Version 2)
Quarter: 2013Q3

REPORT INFORMATION
  Report Type: Spontaneous
  Country: DK (occurrence: CA)
  Receive Date: 20130423
  Receipt Date: 20130830
  Transmission Date: 20140515
  Serious: Yes (Hospitalization)
  Sender: FDA-Public Use
  Company Number: CA-FRI-1000044576

PATIENT
  Age: 36 Year
  Sex: Female

DRUGS (8)
  1. ESCITALOPRAM [Suspect]
     Route: 048
  2. ARTHROTEC [Suspect]
     Route: 048
  3. ETHANOL [Suspect]
     Dosage: 13 ALCOHOLIC DRINKS
     Route: 048
  4. RASBERRY KETONE PLUS [Suspect]
  5. GRAVOL NATURALS CERTIFIED ORGANIC GINGER TABLET [Suspect]
     Route: 048
  6. OXYCONTIN [Concomitant]
  7. SEROQUEL [Concomitant]
  8. TYLENOL NO.1 CAPLETS [Concomitant]
     Dosage: 300 MG/8 MG/15 MG

REACTIONS (3)
  - Crying [Unknown]
  - Vomiting [Unknown]
  - Intentional overdose [Unknown]
